FAERS Safety Report 26037251 (Version 1)
Quarter: 2025Q4

REPORT INFORMATION
  Report Type: Spontaneous
  Country: US (occurrence: US)
  Receive Date: 20251112
  Receipt Date: 20251112
  Transmission Date: 20260118
  Serious: No
  Sender: BOEHRINGER INGELHEIM
  Company Number: US-Komodo Health-a23aa00000Ax9UXAAZ

PATIENT
  Sex: Male

DRUGS (2)
  1. ATROVENT HFA [Suspect]
     Active Substance: IPRATROPIUM BROMIDE
     Indication: Chronic obstructive pulmonary disease
     Dosage: TWO INHALATIONS
     Dates: start: 2023
  2. ATROVENT HFA [Suspect]
     Active Substance: IPRATROPIUM BROMIDE

REACTIONS (4)
  - Dizziness [Unknown]
  - Fatigue [Unknown]
  - Gait disturbance [Unknown]
  - Cough [Unknown]
